FAERS Safety Report 9969218 (Version 1)
Quarter: 2014Q1

REPORT INFORMATION
  Report Type: Spontaneous
  Country: US (occurrence: US)
  Receive Date: 20140306
  Receipt Date: 20140306
  Transmission Date: 20141002
  Serious: No
  Sender: FDA-Public Use
  Company Number: US-BIOGENIDEC-2013BI056213

PATIENT
  Age: 46 Year
  Sex: Female

DRUGS (8)
  1. TECFIDERA [Suspect]
     Indication: MULTIPLE SCLEROSIS
     Route: 048
  2. TECFIDERA [Suspect]
     Indication: MULTIPLE SCLEROSIS
  3. TRAZODONE [Concomitant]
  4. LEVOTHYROXIN [Concomitant]
  5. BENZONATATE [Concomitant]
  6. LEXAPRO [Concomitant]
  7. YAZ 3 [Concomitant]
  8. BENADRYL [Concomitant]

REACTIONS (8)
  - Gastric disorder [Unknown]
  - Cough [Unknown]
  - Dizziness [Not Recovered/Not Resolved]
  - Urticaria [Not Recovered/Not Resolved]
  - Depression [Not Recovered/Not Resolved]
  - Decreased interest [Not Recovered/Not Resolved]
  - Anhedonia [Not Recovered/Not Resolved]
  - Pruritus [Unknown]
